FAERS Safety Report 13927658 (Version 1)
Quarter: 2017Q3

REPORT INFORMATION
  Report Type: Spontaneous
  Country: US (occurrence: US)
  Receive Date: 20170901
  Receipt Date: 20170901
  Transmission Date: 20171127
  Serious: No
  Sender: FDA-Public Use
  Company Number: US-PFIZER INC-2017374248

PATIENT
  Age: 12 Year
  Sex: Male

DRUGS (1)
  1. GENOTROPIN [Suspect]
     Active Substance: SOMATROPIN
     Dosage: 1.4MG ALTERNATING WITH 1.6MG EVERY OTHER DAY
     Route: 058
     Dates: start: 20170509

REACTIONS (3)
  - Product quality issue [Unknown]
  - Underdose [Unknown]
  - Scratch [Unknown]
